FAERS Safety Report 19261607 (Version 3)
Quarter: 2021Q2

REPORT INFORMATION
  Report Type: Report from Study
  Country: US (occurrence: US)
  Receive Date: 20210515
  Receipt Date: 20210602
  Transmission Date: 20210717
  Serious: Yes (Other)
  Sender: FDA-Public Use
  Company Number: NVSC2021US100936

PATIENT
  Age: 59 Year
  Sex: Male

DRUGS (1)
  1. ENTRESTO [Suspect]
     Active Substance: SACUBITRIL\VALSARTAN
     Indication: CARDIAC FAILURE
     Dosage: 1 DF, BID
     Route: 048
     Dates: start: 20210308

REACTIONS (10)
  - Decreased appetite [Unknown]
  - Insomnia [Unknown]
  - Chest discomfort [Unknown]
  - SARS-CoV-2 test positive [Not Recovered/Not Resolved]
  - Dyspnoea [Unknown]
  - Atrial fibrillation [Not Recovered/Not Resolved]
  - Cardiogenic shock [Unknown]
  - Heart rate irregular [Unknown]
  - Pain [Not Recovered/Not Resolved]
  - Fatigue [Not Recovered/Not Resolved]

NARRATIVE: CASE EVENT DATE: 20210408
